FAERS Safety Report 11315715 (Version 2)
Quarter: 2015Q4

REPORT INFORMATION
  Report Type: Spontaneous
  Country: IT (occurrence: IT)
  Receive Date: 20150728
  Receipt Date: 20151030
  Transmission Date: 20160304
  Serious: Yes (Other)
  Sender: FDA-Public Use
  Company Number: IT-ROCHE-1611000

PATIENT
  Age: 82 Year
  Sex: Female

DRUGS (3)
  1. LUCENTIS [Suspect]
     Active Substance: RANIBIZUMAB
     Indication: MACULAR DEGENERATION
     Dosage: 01 POSOLOGIC UNIT.
     Route: 031
     Dates: start: 20150112
  2. LUCENTIS [Suspect]
     Active Substance: RANIBIZUMAB
     Dosage: 01 POSOLOGIC UNIT.
     Route: 031
     Dates: start: 20150622
  3. TIKLID [Concomitant]
     Active Substance: TICLOPIDINE HYDROCHLORIDE

REACTIONS (7)
  - Embolism [Unknown]
  - High density lipoprotein increased [Unknown]
  - Low density lipoprotein increased [Unknown]
  - Retinal artery occlusion [Unknown]
  - Blood glucose increased [Unknown]
  - Retinal ischaemia [Not Recovered/Not Resolved]
  - Blood cholesterol increased [Unknown]

NARRATIVE: CASE EVENT DATE: 20150713
